FAERS Safety Report 4873765-2 (Version None)
Quarter: 2005Q4

REPORT INFORMATION
  Report Type: 
  Country: None (occurrence: None)
  Receive Date: 20051201
  Receipt Date: 20050806
  Transmission Date: 20060501
  Serious: No
  Sender: FDA-Public Use
  Company Number: 2005PV000966

PATIENT
  Age: 67 Year
  Sex: Female

DRUGS (6)
  1. BYETTA [Suspect]
     Dosage: 5 MCG; BID; SC
     Route: 058
     Dates: start: 20050803
  2. AMARYL [Concomitant]
  3. STARLIX [Concomitant]
  4. HUMALOG [Concomitant]
  5. ZANTAC [Concomitant]
  6. DIOVAN [Concomitant]

REACTIONS (4)
  - BLOOD GLUCOSE INCREASED [None]
  - DECREASED APPETITE [None]
  - ORAL INTAKE REDUCED [None]
  - STOMACH DISCOMFORT [None]
